FAERS Safety Report 23843127 (Version 1)
Quarter: 2024Q2

REPORT INFORMATION
  Report Type: Spontaneous
  Country: US (occurrence: None)
  Receive Date: 20240509
  Receipt Date: 20240509
  Transmission Date: 20240716
  Serious: Yes (Hospitalization)
  Sender: FDA-Public Use
  Company Number: None

PATIENT
  Age: 65 Year
  Sex: Female
  Weight: 60.70 kg

DRUGS (20)
  1. TACROLIMUS [Suspect]
     Active Substance: TACROLIMUS
     Indication: Prophylaxis against transplant rejection
     Dosage: FREQUENCY : TWICE A DAY;?
     Route: 048
     Dates: start: 20240401
  2. MYCOPHENOLATE MOFETIL [Suspect]
     Active Substance: MYCOPHENOLATE MOFETIL
     Indication: Prophylaxis against transplant rejection
     Dosage: FREQUENCY : TWICE A DAY;?
     Route: 048
     Dates: start: 20240401
  3. AMLODIPINE [Concomitant]
     Active Substance: AMLODIPINE BESYLATE
     Dates: start: 20240401
  4. atovaquone 750ng/5mL suspension [Concomitant]
     Dates: start: 20240401
  5. calcium carb (600mg) + D3 (400u) tabs [Concomitant]
     Dates: start: 20240401
  6. enoxaparin 40mg SC syringe [Concomitant]
     Dates: start: 20240401
  7. ezetimibe 10mg tabs [Concomitant]
     Dates: start: 20240401
  8. fluticasone 50mcg nasal spray [Concomitant]
     Dates: start: 20240401
  9. Humalog 100u/mL Kwikpen [Concomitant]
     Dates: start: 20240401
  10. LIDOCAINE [Concomitant]
     Active Substance: LIDOCAINE
     Dates: start: 20240401
  11. melatonin 3mg tabs [Concomitant]
     Dates: start: 20240401
  12. metoprolol ER succinate 50mg tabs [Concomitant]
     Dates: start: 20240401
  13. mg plus protein 133mg tabs [Concomitant]
     Dates: start: 20240401
  14. omeprazole 20mg caps [Concomitant]
     Dates: start: 20240401
  15. prednisone 10mg tabs [Concomitant]
     Dates: start: 20240401
  16. Bactrim DS tabs [Concomitant]
     Dates: start: 20240401
  17. tab-a-vite w/iron tabs [Concomitant]
     Dates: start: 20240401
  18. valganciclovir 450mg tabs [Concomitant]
     Dates: start: 20240401
  19. vitamin B-12 1000mcg tabs [Concomitant]
     Dates: start: 20240401
  20. vitamin C 500mg tabs [Concomitant]
     Dates: start: 20240401

REACTIONS (2)
  - Dyspnoea [None]
  - Haematemesis [None]

NARRATIVE: CASE EVENT DATE: 20240423
